FAERS Safety Report 23912451 (Version 2)
Quarter: 2024Q2

REPORT INFORMATION
  Report Type: Report from Study
  Country: US (occurrence: US)
  Receive Date: 20240528
  Receipt Date: 20240529
  Transmission Date: 20240715
  Serious: Yes (Other)
  Sender: FDA-Public Use
  Company Number: US-ABBVIE-5715855

PATIENT
  Age: 55 Year
  Sex: Female
  Weight: 60 kg

DRUGS (15)
  1. RINVOQ [Suspect]
     Active Substance: UPADACITINIB
     Indication: Rheumatoid arthritis
     Route: 048
     Dates: start: 20201120
  2. RINVOQ [Suspect]
     Active Substance: UPADACITINIB
     Indication: Rheumatoid arthritis
     Route: 048
     Dates: start: 202010
  3. RINVOQ [Suspect]
     Active Substance: UPADACITINIB
     Indication: Rheumatoid arthritis
     Dosage: FORM STRENGTH: 15 MG
     Route: 048
     Dates: start: 20240220
  4. EXCEDRIN [Concomitant]
     Active Substance: ACETAMINOPHEN\ASPIRIN\CAFFEINE
     Indication: Headache
     Dosage: FORM STRENGTH: 250-250-565 MG ?2 TABLETS ORALLY EVERY 6 HOURS AS NEEDED
     Route: 048
     Dates: start: 20240220
  5. VITAMIN D3 [Concomitant]
     Active Substance: CHOLECALCIFEROL
     Indication: Vitamin D deficiency
     Dosage: TIME INTERVAL: 0.33333333 WEEKS
     Route: 048
     Dates: start: 20240220
  6. CIPROFLOXACIN HYDROCHLORIDE [Concomitant]
     Active Substance: CIPROFLOXACIN HYDROCHLORIDE
     Indication: Urinary tract infection
     Dosage: 1 TABLET BY MOUTH EVERY 12 HRS. FOR 7 DAYS
     Route: 048
     Dates: start: 20240220
  7. ERGOCALCIFEROL [Concomitant]
     Active Substance: ERGOCALCIFEROL
     Indication: Vitamin D deficiency
     Dosage: TAKE 1 CAPSULE 50000 UNIT EVERY OTHER WEEK
     Route: 048
     Dates: start: 20240220
  8. GABAPENTIN [Concomitant]
     Active Substance: GABAPENTIN
     Indication: Pain
     Dosage: BEFORE DINNER AS NEEDED
     Route: 048
     Dates: start: 20240220
  9. HYDROXYCHLOROQUINE SULFATE [Concomitant]
     Active Substance: HYDROXYCHLOROQUINE SULFATE
     Indication: Rheumatoid arthritis
     Dosage: TAKE 1 TABLET BY MOUTH WITH FOOD OR MILK WITH DINNER (TAPER)
     Route: 048
     Dates: start: 20240220
  10. IBANDRONATE SODIUM [Concomitant]
     Active Substance: IBANDRONATE SODIUM
     Indication: Osteoporosis
     Dosage: EVERY 30 DAYS 60 MINUTES BEFORE THE FIRST FOOD BEVERAGE OR MEDICINE OF THE DAY WITH PLAIN WATER
     Route: 048
     Dates: start: 20240220
  11. LEVOTHYROXINE SODIUM [Concomitant]
     Active Substance: LEVOTHYROXINE SODIUM
     Indication: Hypothyroidism
     Dosage: TAKE 1 TABLET 50 MCG DAILY IN THE MORNING ON AN EMPTY STOMACH EXCEPT ON THURSDAY AND SUNDAY TAKE ...
     Route: 050
     Dates: start: 20240220
  12. OLOPATADINE HYDROCHLORIDE [Concomitant]
     Active Substance: OLOPATADINE HYDROCHLORIDE
     Indication: Rhinitis allergic
     Dosage: 0.2 % OPHTHALMIC SOLUTION ?1 DROP OPTHALMICALLY  INTO AFFECTED EYE DAILY
     Route: 047
     Dates: start: 20240220
  13. FISH OIL [Concomitant]
     Active Substance: FISH OIL
     Indication: Lipid metabolism disorder
     Dosage: HOLD FOR 5 DAYS BEFORE SURGERY
     Route: 048
     Dates: start: 20240220
  14. SERTRALINE HYDROCHLORIDE [Concomitant]
     Active Substance: SERTRALINE HYDROCHLORIDE
     Indication: Depression
     Route: 048
     Dates: start: 20240220
  15. ACETAMINOPHEN [Concomitant]
     Active Substance: ACETAMINOPHEN
     Indication: Product used for unknown indication

REACTIONS (13)
  - Long QT syndrome [Unknown]
  - Fall [Unknown]
  - Hepatic enzyme increased [Not Recovered/Not Resolved]
  - Arthralgia [Unknown]
  - Blood cholesterol abnormal [Unknown]
  - Joint dislocation [Unknown]
  - Red cell distribution width increased [Unknown]
  - White blood cells urine positive [Unknown]
  - Red blood cells urine positive [Unknown]
  - Synovial cyst [Unknown]
  - Dermal cyst [Unknown]
  - Melanocytic naevus [Unknown]
  - Blood glucose increased [Unknown]

NARRATIVE: CASE EVENT DATE: 20220201
